FAERS Safety Report 4374390-2 (Version None)
Quarter: 2004Q2

REPORT INFORMATION
  Report Type: 
  Country: None (occurrence: None)
  Receive Date: 20040603
  Receipt Date: 20040518
  Transmission Date: 20050107
  Serious: Yes (Hospitalization)
  Sender: FDA-Public Use
  Company Number: FR_040504149

PATIENT
  Age: 74 Year
  Sex: Male

DRUGS (4)
  1. GEMZAR [Suspect]
     Indication: BLADDER CANCER
  2. SECTRAL [Concomitant]
  3. ALLOPURINOL [Concomitant]
  4. ALPRESS (PRAZOSIN HYDROCHLORIDE) [Concomitant]

REACTIONS (2)
  - CYANOSIS [None]
  - PARANEOPLASTIC SYNDROME [None]
